FAERS Safety Report 6170330-4 (Version None)
Quarter: 2009Q3

REPORT INFORMATION
  Report Type: 
  Country: None (occurrence: None)
  Receive Date: 20090427
  Receipt Date: 20090427
  Transmission Date: 20100115
  Serious: Yes (Hospitalization)
  Sender: FDA-Public Use
  Company Number: None

PATIENT
  Age: 65 Year
  Sex: Female
  Weight: 81.6475 kg

DRUGS (1)
  1. PRAVACHOL [Suspect]
     Indication: BLOOD CHOLESTEROL
     Dosage: 40 MG 1 1 DAILY TAKEN SINCE 2006
     Dates: start: 20060101

REACTIONS (1)
  - RHABDOMYOLYSIS [None]
